FAERS Safety Report 4445471-X (Version None)
Quarter: 2004Q2

REPORT INFORMATION
  Report Type: 
  Country: None (occurrence: None)
  Receive Date: 20040428
  Receipt Date: 20030507
  Transmission Date: 20050107
  Serious: Yes (Hospitalization)
  Sender: FDA-Public Use
  Company Number: 200310055BBE

PATIENT
  Age: 4 Year
  Sex: Female

DRUGS (4)
  1. GAMIMUNE N 10% [Suspect]
     Dosage: 400 MG/KG, ONCE, INTRAVENOUS
     Route: 042
  2. REGLAN [Concomitant]
  3. SINGULAIR [Concomitant]
  4. ZYRTEC [Concomitant]

REACTIONS (2)
  - HEADACHE [None]
  - MENINGITIS ASEPTIC [None]
